FAERS Safety Report 21964886 (Version 2)
Quarter: 2023Q1

REPORT INFORMATION
  Report Type: Report from Study
  Country: JP (occurrence: JP)
  Receive Date: 20230207
  Receipt Date: 20230302
  Transmission Date: 20230417
  Serious: Yes (Other)
  Sender: FDA-Public Use
  Company Number: JP-TAKEDA-2023TJP001520

PATIENT
  Age: 58 Year
  Sex: Male

DRUGS (1)
  1. LEUPROLIDE ACETATE [Suspect]
     Active Substance: LEUPROLIDE ACETATE
     Indication: Bulbospinal muscular atrophy congenital
     Dosage: 11.25 MILLIGRAM, Q3MONTHS
     Route: 058
     Dates: start: 20171025

REACTIONS (3)
  - Upper limb fracture [Recovered/Resolved with Sequelae]
  - Foot fracture [Recovered/Resolved with Sequelae]
  - Limb fracture [Recovered/Resolved with Sequelae]

NARRATIVE: CASE EVENT DATE: 20181010
